FAERS Safety Report 24947783 (Version 1)
Quarter: 2025Q1

REPORT INFORMATION
  Report Type: Spontaneous
  Country: HK (occurrence: HK)
  Receive Date: 20250210
  Receipt Date: 20250210
  Transmission Date: 20250409
  Serious: Yes (Death, Hospitalization)
  Sender: AMGEN
  Company Number: HK-AMGEN-HKGSP2025022859

PATIENT

DRUGS (1)
  1. RITUXIMAB [Suspect]
     Active Substance: RITUXIMAB
     Indication: Neoplasm malignant
     Route: 065

REACTIONS (9)
  - Death [Fatal]
  - Unevaluable event [Unknown]
  - COVID-19 [Unknown]
  - Chronic respiratory disease [Unknown]
  - Acute respiratory distress syndrome [Unknown]
  - Coronary artery disease [Unknown]
  - Cardiac failure congestive [Unknown]
  - Chronic kidney disease [Unknown]
  - Acute kidney injury [Unknown]
